FAERS Safety Report 6292672-4 (Version None)
Quarter: 2009Q3

REPORT INFORMATION
  Report Type: 
  Country: None (occurrence: None)
  Receive Date: 20090731
  Receipt Date: 20090729
  Transmission Date: 20100115
  Serious: Yes (Other)
  Sender: FDA-Public Use
  Company Number: A0799531A

PATIENT
  Age: 26 Year
  Sex: Female
  Weight: 75 kg

DRUGS (3)
  1. ALLI [Suspect]
     Indication: WEIGHT LOSS DIET
     Route: 048
     Dates: start: 20090701, end: 20090728
  2. LAMICTAL [Concomitant]
     Indication: EPILEPSY
  3. PROZAC [Concomitant]
     Indication: DEPRESSION

REACTIONS (3)
  - ABDOMINAL DISCOMFORT [None]
  - ABDOMINAL PAIN UPPER [None]
  - RECTAL HAEMORRHAGE [None]
